FAERS Safety Report 10504882 (Version 4)
Quarter: 2016Q1

REPORT INFORMATION
  Report Type: Report from Study
  Country: US (occurrence: US)
  Receive Date: 20141008
  Receipt Date: 20160203
  Transmission Date: 20160525
  Serious: Yes (Other)
  Sender: FDA-Public Use
  Company Number: US-ALEXION PHARMACEUTICALS INC.-A201403771

PATIENT
  Age: 69 Year
  Sex: Female

DRUGS (1)
  1. SOLIRIS [Suspect]
     Active Substance: ECULIZUMAB
     Indication: HAEMOLYTIC URAEMIC SYNDROME
     Route: 042

REACTIONS (3)
  - Tremor [Not Recovered/Not Resolved]
  - Parkinson^s disease [Not Recovered/Not Resolved]
  - Depression [Not Recovered/Not Resolved]

NARRATIVE: CASE EVENT DATE: 20140924
